FAERS Safety Report 16531011 (Version 1)
Quarter: 2019Q3

REPORT INFORMATION
  Report Type: Report from Study
  Country: FR (occurrence: FR)
  Receive Date: 20190705
  Receipt Date: 20190705
  Transmission Date: 20191004
  Serious: Yes (Congenital Anomaly, Other)
  Sender: FDA-Public Use
  Company Number: FR-AUROBINDO-AUR-APL-2019-037504

PATIENT

DRUGS (3)
  1. LEVETIRACETAM. [Suspect]
     Active Substance: LEVETIRACETAM
     Indication: EPILEPSY
     Dosage: UNK, UNKNOWN DOSE
     Route: 063
  2. LEVETIRACETAM. [Suspect]
     Active Substance: LEVETIRACETAM
     Dosage: 750 MILLIGRAM, ONCE A DAY
     Route: 064
  3. LUTENYL [Concomitant]
     Active Substance: NOMEGESTROL ACETATE
     Indication: PRODUCT USED FOR UNKNOWN INDICATION
     Dosage: UNK, UNKNOWN DOSE
     Route: 064

REACTIONS (5)
  - Maternal exposure during pregnancy [Unknown]
  - Foetal distress syndrome [Unknown]
  - Foetal cardiac disorder [Unknown]
  - Disturbance in attention [Unknown]
  - Exposure via breast milk [Unknown]
